FAERS Safety Report 7198039-9 (Version None)
Quarter: 2010Q4

REPORT INFORMATION
  Report Type: 
  Country: None (occurrence: None)
  Receive Date: 20101227
  Receipt Date: 20101221
  Transmission Date: 20110411
  Serious: Yes (Hospitalization)
  Sender: FDA-Public Use
  Company Number: FR-ROCHE-749576

PATIENT
  Sex: Female

DRUGS (7)
  1. RIVOTRIL [Suspect]
     Route: 048
     Dates: start: 20100706, end: 20100706
  2. SERESTA [Suspect]
     Route: 048
     Dates: start: 20100703
  3. RISPERDAL [Suspect]
     Route: 048
     Dates: start: 20100705, end: 20100705
  4. LASIX [Suspect]
     Route: 048
  5. IRBESARTAN [Suspect]
     Route: 048
     Dates: end: 20100707
  6. KARDEGIC [Concomitant]
     Dosage: AS LONG TERM
  7. HEMIGOXINE NATIVELLE [Concomitant]
     Dosage: AS LONG TERM

REACTIONS (3)
  - BLOOD CREATININE INCREASED [None]
  - FALL [None]
  - HYPONATRAEMIA [None]
